FAERS Safety Report 13873832 (Version 1)
Quarter: 2017Q3

REPORT INFORMATION
  Report Type: Spontaneous
  Country: US (occurrence: US)
  Receive Date: 20170816
  Receipt Date: 20170816
  Transmission Date: 20171127
  Serious: No
  Sender: FDA-Public Use
  Company Number: US-INTERPRAG-PM-OCA2017-00505

PATIENT

DRUGS (6)
  1. URSODIOL. [Concomitant]
     Active Substance: URSODIOL
  2. FERROUS GLUCONATE [Concomitant]
     Active Substance: FERROUS GLUCONATE
  3. OCALIVA [Suspect]
     Active Substance: OBETICHOLIC ACID
     Indication: BILIARY CIRRHOSIS PRIMARY
     Dosage: 5 MG, QD
     Route: 048
     Dates: start: 20170509
  4. WARFARIN                           /00014802/ [Concomitant]
     Active Substance: WARFARIN
  5. AZATHIOPRINE. [Concomitant]
     Active Substance: AZATHIOPRINE
  6. IRON [Concomitant]
     Active Substance: IRON

REACTIONS (1)
  - Pruritus generalised [Not Recovered/Not Resolved]

NARRATIVE: CASE EVENT DATE: 20170509
